FAERS Safety Report 7655361-7 (Version None)
Quarter: 2011Q3

REPORT INFORMATION
  Report Type: 
  Country: None (occurrence: None)
  Receive Date: 20110804
  Receipt Date: 20110725
  Transmission Date: 20111222
  Serious: Yes (Other)
  Sender: FDA-Public Use
  Company Number: US-JNJFOC-20110711909

PATIENT
  Age: 31 Year
  Sex: Female
  Weight: 63.5 kg

DRUGS (3)
  1. ROGAINE FOR WOMEN REGULAR STRENGTH [Suspect]
     Indication: HAIR GROWTH ABNORMAL
     Dosage: 1ML TO SLIGHTLY MORE THAN 1ML
     Route: 061
     Dates: start: 20110719, end: 20110725
  2. ROGAINE FOR WOMEN REGULAR STRENGTH [Suspect]
     Route: 061
  3. BIRTH CONTROL PILLS [Concomitant]
     Indication: CONTRACEPTION
     Route: 065

REACTIONS (8)
  - FEELING ABNORMAL [None]
  - VERTIGO [None]
  - BLOOD PRESSURE DECREASED [None]
  - INCORRECT DOSE ADMINISTERED [None]
  - IMPAIRED WORK ABILITY [None]
  - HYPERHIDROSIS [None]
  - DIZZINESS [None]
  - OFF LABEL USE [None]
